FAERS Safety Report 8843687 (Version 2)
Quarter: 2013Q1

REPORT INFORMATION
  Report Type: Spontaneous
  Country: CA (occurrence: CA)
  Receive Date: 20121016
  Receipt Date: 20130222
  Transmission Date: 20140127
  Serious: Yes (Hospitalization)
  Sender: FDA-Public Use
  Company Number: CA-MERCK-1210CAN006848

PATIENT
  Age: 62 Year
  Sex: Male
  Weight: 86 kg

DRUGS (3)
  1. SAPHRIS [Suspect]
     Indication: PRODUCT USED FOR UNKNOWN INDICATION
     Dosage: UNK
     Route: 065
     Dates: end: 2012
  2. SAPHRIS [Suspect]
     Dosage: 5 MG, BID
     Route: 065
     Dates: start: 20130125, end: 201302
  3. SAPHRIS [Suspect]
     Dosage: 10 MG, BID
     Route: 065
     Dates: start: 201302

REACTIONS (1)
  - Urinary tract infection [Recovered/Resolved]
